FAERS Safety Report 7226842-5 (Version None)
Quarter: 2011Q1

REPORT INFORMATION
  Report Type: 
  Country: None (occurrence: None)
  Receive Date: 20110105
  Receipt Date: 20101210
  Transmission Date: 20110831
  Serious: Yes (Life-Threatening, Hospitalization)
  Sender: FDA-Public Use
  Company Number: CZ-021560

PATIENT
  Age: 66 Year
  Sex: Male

DRUGS (1)
  1. (CHLORAMBUCIL) [Suspect]
     Indication: CHRONIC LYMPHOCYTIC LEUKAEMIA
     Dosage: 10MG/M2 AT DAYS 1-7 EVERY 28 DAYS ORAL
     Route: 048
     Dates: start: 20101116

REACTIONS (2)
  - FEBRILE NEUTROPENIA [None]
  - ORAL HERPES [None]
